FAERS Safety Report 8059170-9 (Version None)
Quarter: 2012Q1

REPORT INFORMATION
  Report Type: 
  Country: None (occurrence: None)
  Receive Date: 20120119
  Receipt Date: 20120119
  Transmission Date: 20120608
  Serious: No
  Sender: FDA-Public Use
  Company Number: None

PATIENT
  Age: 69 Year
  Sex: Female
  Weight: 58.9676 kg

DRUGS (1)
  1. SPIRIVA [Suspect]
     Indication: ASTHMA
     Dosage: 1 CAPSULE 1 PER DAY INHALER  DEC. - JAN. 9, 2012
     Route: 055
     Dates: start: 20111201, end: 20120109

REACTIONS (1)
  - PRODUCT QUALITY ISSUE [None]
